FAERS Safety Report 9890462 (Version 1)
Quarter: 2014Q1

REPORT INFORMATION
  Report Type: Spontaneous
  Country: US (occurrence: None)
  Receive Date: 20140211
  Receipt Date: 20140211
  Transmission Date: 20141002
  Serious: Yes (Death)
  Sender: FDA-Public Use
  Company Number: None

PATIENT
  Age: 48 Year
  Sex: Male
  Weight: 88 kg

DRUGS (15)
  1. HEPARIN [Suspect]
     Indication: ATRIAL FIBRILLATION
     Dosage: CONTINUOUS INTRAVENOUS
     Route: 042
     Dates: start: 20111005, end: 20111006
  2. LISINOPRIL [Concomitant]
  3. WARFARIN [Concomitant]
  4. ALLOPURINOL [Concomitant]
  5. AMLODIPINE [Concomitant]
  6. ASPIRIN [Concomitant]
  7. ATORVASTATIN [Concomitant]
  8. HYDRALAZINE [Concomitant]
  9. METOPROLOL [Concomitant]
  10. FUROSEMIDE [Concomitant]
  11. IRBESARTAN [Concomitant]
  12. RANITIDINE [Concomitant]
  13. CEFAZOLIN [Concomitant]
  14. VANCOMYCIN [Concomitant]
  15. INSULIN ASPART [Concomitant]

REACTIONS (4)
  - Activated partial thromboplastin time prolonged [None]
  - Ventricular fibrillation [None]
  - Abdominal compartment syndrome [None]
  - Procedural haemorrhage [None]
